FAERS Safety Report 6527254-X (Version None)
Quarter: 2010Q1

REPORT INFORMATION
  Report Type: 
  Country: None (occurrence: None)
  Receive Date: 20100105
  Receipt Date: 20091223
  Transmission Date: 20100710
  Serious: Yes (Other)
  Sender: FDA-Public Use
  Company Number: US-PFIZER INC-2009281623

PATIENT
  Sex: Male
  Weight: 116.1 kg

DRUGS (5)
  1. CHANTIX [Suspect]
     Indication: SMOKING CESSATION THERAPY
     Dosage: FREQUENCY: 2X/DAY,
     Route: 048
     Dates: start: 20090922
  2. TRAMADOL HYDROCHLORIDE [Concomitant]
     Indication: BACK PAIN
     Dosage: FREQUENCY: 2X/DAY,
     Route: 048
     Dates: start: 20090107
  3. LYRICA [Concomitant]
     Indication: NEURALGIA
     Dosage: FREQUENCY: 2X/DAY,
     Route: 048
     Dates: start: 20090901
  4. LYRICA [Concomitant]
     Indication: INTERVERTEBRAL DISC PROTRUSION
  5. MARIJUANA [Concomitant]
     Dosage: UNK

REACTIONS (10)
  - DELIRIUM [None]
  - HALLUCINATION [None]
  - MOOD ALTERED [None]
  - NAUSEA [None]
  - NIGHTMARE [None]
  - OESOPHAGEAL MASS [None]
  - REGURGITATION [None]
  - SUICIDAL IDEATION [None]
  - TREMOR [None]
  - WEIGHT DECREASED [None]
